FAERS Safety Report 9952127 (Version 1)
Quarter: 2014Q1

REPORT INFORMATION
  Report Type: Report from Study
  Country: US (occurrence: US)
  Receive Date: 20140304
  Receipt Date: 20140304
  Transmission Date: 20141002
  Serious: No
  Sender: FDA-Public Use
  Company Number: US-ABBVIE-13P-163-1079779-00

PATIENT
  Sex: Female

DRUGS (1)
  1. HUMIRA [Suspect]
     Indication: RHEUMATOID ARTHRITIS
     Dosage: INJECT 0.8 ML UNDER THE SKIN EVERY 2 WEEKS FOR 30 DAYS
     Route: 058
     Dates: start: 200804

REACTIONS (2)
  - No therapeutic response [Unknown]
  - Condition aggravated [Unknown]
